FAERS Safety Report 20759439 (Version 1)
Quarter: 2022Q2

REPORT INFORMATION
  Report Type: Spontaneous
  Country: US (occurrence: US)
  Receive Date: 20220427
  Receipt Date: 20220427
  Transmission Date: 20220721
  Serious: No
  Sender: FDA-Public Use
  Company Number: US-BioHaven Pharmaceuticals-2022BHV000540

PATIENT

DRUGS (1)
  1. NURTEC ODT [Suspect]
     Active Substance: RIMEGEPANT SULFATE
     Indication: Migraine
     Dosage: 1 TABLET; PATIENT STARTED TAKING NURTEC 6 MONTHS AGO.
     Route: 048
     Dates: start: 2021

REACTIONS (7)
  - Product taste abnormal [Unknown]
  - Vomiting [Unknown]
  - Palpitations [Unknown]
  - Malaise [Unknown]
  - Tremor [Unknown]
  - Product quality issue [Unknown]
  - Drug ineffective [Unknown]

NARRATIVE: CASE EVENT DATE: 20220211
